FAERS Safety Report 15381903 (Version 2)
Quarter: 2018Q3

REPORT INFORMATION
  Report Type: Spontaneous
  Country: JP (occurrence: JP)
  Receive Date: 20180913
  Receipt Date: 20180928
  Transmission Date: 20181010
  Serious: Yes (Hospitalization, Other)
  Sender: FDA-Public Use
  Company Number: JP-ALLERGAN-1844843US

PATIENT
  Age: 34 Year
  Sex: Male

DRUGS (26)
  1. BOTOX [Suspect]
     Active Substance: ONABOTULINUMTOXINA
     Dosage: 50 IU, SINGLE
     Route: 030
     Dates: start: 20170817, end: 20170817
  2. BOTOX [Suspect]
     Active Substance: ONABOTULINUMTOXINA
     Dosage: 10 IU, SINGLE
     Route: 030
     Dates: start: 20171228, end: 20171228
  3. PULSMARIN A [Concomitant]
     Active Substance: AMBROXOL HYDROCHLORIDE
     Indication: BRONCHITIS CHRONIC
     Dosage: 45 MG, QD
     Route: 065
  4. BOTOX [Suspect]
     Active Substance: ONABOTULINUMTOXINA
     Indication: MUSCLE SPASMS
     Dosage: 10 IU, SINGLE (5.7 IU/KG/SESSION)
     Route: 030
     Dates: start: 20170817, end: 20170817
  5. BOTOX [Suspect]
     Active Substance: ONABOTULINUMTOXINA
     Dosage: 40 IU, SINGLE
     Route: 030
     Dates: start: 20171228, end: 20171228
  6. DIAZEPAM. [Concomitant]
     Active Substance: DIAZEPAM
     Indication: QUADRIPLEGIA
     Dosage: 3 MG, QD
     Route: 065
  7. BOTOX [Suspect]
     Active Substance: ONABOTULINUMTOXINA
     Dosage: 30 IU, SINGLE
     Route: 030
     Dates: start: 20171228, end: 20171228
  8. RIKKUNSHITOU [Concomitant]
     Indication: GASTROOESOPHAGEAL REFLUX DISEASE
     Dosage: 7.5 G, QD
     Route: 065
     Dates: start: 20161001
  9. L CARTIN [Concomitant]
     Active Substance: LEVOCARNITINE HYDROCHLORIDE
     Indication: CARNITINE DEFICIENCY
     Dosage: 10 ML, QD
     Route: 065
  10. RENIVACE [Concomitant]
     Active Substance: ENALAPRIL
     Indication: CARDIAC FAILURE CONGESTIVE
     Dosage: .125 MG, QOD
     Route: 065
  11. NIZORAL [Concomitant]
     Active Substance: KETOCONAZOLE
     Indication: SEBORRHOEIC DERMATITIS
     Dosage: UNK UNK, QD
     Route: 065
     Dates: start: 2016
  12. BOTOX [Suspect]
     Active Substance: ONABOTULINUMTOXINA
     Dosage: 30 IU, SINGLE
     Route: 030
     Dates: start: 20170817, end: 20170817
  13. BOTOX [Suspect]
     Active Substance: ONABOTULINUMTOXINA
     Indication: QUADRIPLEGIA
     Dosage: 10 IU, SINGLE
     Route: 030
     Dates: start: 20170817, end: 20170817
  14. BOTOX [Suspect]
     Active Substance: ONABOTULINUMTOXINA
     Dosage: 50 IU, SINGLE
     Route: 030
     Dates: start: 20170817, end: 20170817
  15. PULSMARIN A [Concomitant]
     Active Substance: AMBROXOL HYDROCHLORIDE
     Dosage: 15 MG, QD
  16. DIAZEPAM. [Concomitant]
     Active Substance: DIAZEPAM
     Indication: INSOMNIA
  17. BOTOX [Suspect]
     Active Substance: ONABOTULINUMTOXINA
     Dosage: 20 IU, SINGLE
     Route: 030
     Dates: start: 20171228, end: 20171228
  18. MOSAPRIDE CITRATE [Concomitant]
     Active Substance: MOSAPRIDE CITRATE
     Indication: GASTROOESOPHAGEAL REFLUX DISEASE
     Dosage: 15 MG, QD
     Route: 065
  19. BOTOX [Suspect]
     Active Substance: ONABOTULINUMTOXINA
     Dosage: 20 IU, SINGLE
     Route: 030
     Dates: start: 20170817, end: 20170817
  20. BOTOX [Suspect]
     Active Substance: ONABOTULINUMTOXINA
     Dosage: 30 IU, SINGLE
     Route: 030
     Dates: start: 20170817, end: 20170817
  21. BOTOX [Suspect]
     Active Substance: ONABOTULINUMTOXINA
     Dosage: 10 IU, SINGLE
     Route: 030
     Dates: start: 20171228, end: 20171228
  22. BOTOX [Suspect]
     Active Substance: ONABOTULINUMTOXINA
     Dosage: 30 IU, SINGLE
     Route: 030
     Dates: start: 20171228, end: 20171228
  23. BOTOX [Suspect]
     Active Substance: ONABOTULINUMTOXINA
     Dosage: 40 IU, SINGLE
     Route: 030
     Dates: start: 20171228, end: 20171228
  24. BOTOX [Suspect]
     Active Substance: ONABOTULINUMTOXINA
     Dosage: 20 IU, SINGLE
     Route: 030
     Dates: start: 20171228, end: 20171228
  25. TERNELIN [Concomitant]
     Active Substance: TIZANIDINE
     Indication: QUADRIPLEGIA
     Dosage: 3 MG, UNK
     Route: 065
  26. AZUNOL [Concomitant]
     Active Substance: SODIUM GUALENATE
     Indication: SKIN ULCER
     Dosage: UNK UNK, QD
     Route: 065
     Dates: start: 2017

REACTIONS (12)
  - Pneumonia [Recovering/Resolving]
  - Tachypnoea [Recovering/Resolving]
  - Sputum increased [Recovering/Resolving]
  - Hyperthermia [Recovered/Resolved]
  - Hyperthermia [Recovered/Resolved]
  - Hypoxia [Recovering/Resolving]
  - Bronchitis [Recovered/Resolved]
  - Bronchitis [Recovered/Resolved]
  - Sputum discoloured [Recovering/Resolving]
  - Pneumonia [Recovering/Resolving]
  - Sputum discoloured [Recovering/Resolving]
  - Sputum increased [Recovering/Resolving]

NARRATIVE: CASE EVENT DATE: 201708
